FAERS Safety Report 13967139 (Version 1)
Quarter: 2017Q3

REPORT INFORMATION
  Report Type: Spontaneous
  Country: US (occurrence: None)
  Receive Date: 20170908
  Receipt Date: 20170908
  Transmission Date: 20171128
  Serious: Yes (Life-Threatening, Disabling, Other)
  Sender: FDA-Public Use
  Company Number: None

PATIENT
  Age: 61 Year
  Sex: Female
  Weight: 56.25 kg

DRUGS (3)
  1. TRIUMEQ [Suspect]
     Active Substance: ABACAVIR SULFATE\DOLUTEGRAVIR SODIUM\LAMIVUDINE
     Indication: CANDIDA INFECTION
     Route: 048
     Dates: start: 20170731, end: 20170805
  2. TRIUMEQ [Suspect]
     Active Substance: ABACAVIR SULFATE\DOLUTEGRAVIR SODIUM\LAMIVUDINE
     Indication: ACQUIRED IMMUNODEFICIENCY SYNDROME
     Route: 048
     Dates: start: 20170731, end: 20170805
  3. TRIUMEQ [Suspect]
     Active Substance: ABACAVIR SULFATE\DOLUTEGRAVIR SODIUM\LAMIVUDINE
     Indication: HIV INFECTION
     Route: 048
     Dates: start: 20170731, end: 20170805

REACTIONS (9)
  - Vomiting [None]
  - Anosmia [None]
  - Neuropathy peripheral [None]
  - Constipation [None]
  - Skin ulcer [None]
  - Immune reconstitution inflammatory syndrome [None]
  - Gait inability [None]
  - Blister [None]
  - Opportunistic infection [None]

NARRATIVE: CASE EVENT DATE: 20170805
